FAERS Safety Report 6312315-0 (Version None)
Quarter: 2009Q3

REPORT INFORMATION
  Report Type: 
  Country: None (occurrence: None)
  Receive Date: 20090817
  Receipt Date: 20090804
  Transmission Date: 20100115
  Serious: Yes (Hospitalization, Disabling)
  Sender: FDA-Public Use
  Company Number: BR-ROCHE-620924

PATIENT
  Age: 33 Year
  Sex: Male

DRUGS (3)
  1. FUZEON [Suspect]
     Indication: ANTIRETROVIRAL THERAPY
     Dosage: OTHER INDICATION:ACQUIRED IMMUNO DEFFICIENCY SYNDROME, ROUTE:SUBCUTANEOUS,DOSE:90MG/ML
     Route: 042
     Dates: start: 20090202
  2. RALTEGRAVIR [Concomitant]
     Indication: ANTIRETROVIRAL THERAPY
  3. DARUNAVIR [Concomitant]
     Indication: ANTIRETROVIRAL THERAPY

REACTIONS (7)
  - ADVERSE EVENT [None]
  - CD4 LYMPHOCYTES DECREASED [None]
  - CENTRAL NERVOUS SYSTEM LESION [None]
  - PROGRESSIVE MULTIFOCAL LEUKOENCEPHALOPATHY [None]
  - QUADRIPARESIS [None]
  - THERAPEUTIC RESPONSE DECREASED [None]
  - TOXOPLASMOSIS [None]
